FAERS Safety Report 12596734 (Version 2)
Quarter: 2016Q4

REPORT INFORMATION
  Report Type: Spontaneous
  Country: JP (occurrence: JP)
  Receive Date: 20160726
  Receipt Date: 20161011
  Transmission Date: 20170207
  Serious: Yes (Death, Hospitalization)
  Sender: FDA-Public Use
  Company Number: JP-CELGENEUS-JPN-2016075998

PATIENT
  Age: 6 Decade
  Sex: Male
  Weight: 52.8 kg

DRUGS (9)
  1. GEMZAR [Suspect]
     Active Substance: GEMCITABINE HYDROCHLORIDE
     Route: 041
  2. ABRAXANE [Suspect]
     Active Substance: PACLITAXEL
     Indication: PANCREATIC CARCINOMA STAGE IV
     Dosage: 220 MILLIGRAM
     Route: 041
     Dates: start: 20151027, end: 20160204
  3. RINDERON V [Concomitant]
     Active Substance: BETAMETHASONE VALERATE
     Dosage: 900 MILLIGRAM
     Route: 065
     Dates: start: 20160301
  4. REBAMIPIDE [Concomitant]
     Active Substance: REBAMIPIDE
     Indication: GASTROINTESTINAL ULCER
     Route: 048
     Dates: start: 20151016, end: 20151104
  5. LIPACREON [Concomitant]
     Active Substance: PANCRELIPASE
     Indication: PANCREATIC INSUFFICIENCY
     Route: 048
     Dates: start: 20151002, end: 20160217
  6. GEMZAR [Suspect]
     Active Substance: GEMCITABINE HYDROCHLORIDE
     Indication: PANCREATIC CARCINOMA STAGE IV
     Route: 041
     Dates: start: 20151027, end: 20160217
  7. LAC-B [Concomitant]
     Active Substance: BIFIDOBACTERIUM SPP.
     Indication: DIARRHOEA
     Route: 048
     Dates: start: 20151002, end: 20151218
  8. LOXOPROFEN [Concomitant]
     Active Substance: LOXOPROFEN
     Indication: CANCER PAIN
     Route: 048
     Dates: start: 20151016, end: 20151104
  9. RINDERON V [Concomitant]
     Active Substance: BETAMETHASONE VALERATE
     Indication: CACHEXIA
     Route: 048
     Dates: start: 20151202, end: 20160217

REACTIONS (6)
  - Septic shock [Fatal]
  - Disseminated intravascular coagulation [Fatal]
  - Decreased appetite [Unknown]
  - Pancreatic carcinoma [Fatal]
  - Pancreatic abscess [Fatal]
  - Malaise [Unknown]

NARRATIVE: CASE EVENT DATE: 201601
